FAERS Safety Report 18903097 (Version 1)
Quarter: 2021Q1

REPORT INFORMATION
  Report Type: Spontaneous
  Country: CN (occurrence: CN)
  Receive Date: 20210216
  Receipt Date: 20210216
  Transmission Date: 20210420
  Serious: Yes (Other)
  Sender: FDA-Public Use
  Company Number: CN-BAXTER-2021BAX002965

PATIENT
  Age: 49 Year
  Sex: Female

DRUGS (8)
  1. ENDOXAN [Suspect]
     Active Substance: CYCLOPHOSPHAMIDE
     Indication: BREAST CANCER FEMALE
     Dosage: CYCLOPHOSPHAMIDE + SODIUM CHLORIDE 100 ML
     Route: 041
     Dates: start: 20201210, end: 20201210
  2. ENDOXAN [Suspect]
     Active Substance: CYCLOPHOSPHAMIDE
     Dosage: DOSE RE?INTRODUCED, CYCLOPHOSPHAMIDE + SODIUM CHLORIDE
     Route: 041
  3. DOXORUBICIN HYDROCHLORIDE LIPOSOME [Suspect]
     Active Substance: DOXORUBICIN HYDROCHLORIDE
     Dosage: DOSE RE?INTRODUCED, DOXORUBICIN HYDROCHLORIDE LIPOSOME + GLUCOSE INJECTION
     Route: 041
  4. SODIUM CHLORIDE. [Suspect]
     Active Substance: SODIUM CHLORIDE
     Dosage: DOSE RE?INTRODUCED, SODIUM CHLORIDE + CYCLOPHOSPHAMIDE
     Route: 041
  5. DOXORUBICIN HYDROCHLORIDE LIPOSOME [Suspect]
     Active Substance: DOXORUBICIN HYDROCHLORIDE
     Indication: BREAST CANCER FEMALE
     Dosage: DOXORUBICIN HYDROCHLORIDE LIPOSOME + GLUCOSE INJECTION 250 ML
     Route: 041
     Dates: start: 20201210, end: 20201210
  6. GLUCOSE [Suspect]
     Active Substance: DEXTROSE
     Indication: MEDICATION DILUTION
     Dosage: GLUCOSE + DOXORUBICIN HYDROCHLORIDE 60 MG
     Route: 041
     Dates: start: 20201210, end: 20201210
  7. SODIUM CHLORIDE. [Suspect]
     Active Substance: SODIUM CHLORIDE
     Indication: MEDICATION DILUTION
     Dosage: SODIUM CHLORIDE + CYCLOPHOSPHAMIDE (IMPORTED) 0.80 G
     Route: 041
     Dates: start: 20201210, end: 20201210
  8. GLUCOSE [Suspect]
     Active Substance: DEXTROSE
     Dosage: DOSE RE?INTRODUCED, GLUCOSE + DOXORUBICIN HYDROCHLORIDE
     Route: 041

REACTIONS (6)
  - Haematemesis [Unknown]
  - Gastrointestinal disorder [Recovering/Resolving]
  - Palmar-plantar erythrodysaesthesia syndrome [Recovering/Resolving]
  - Dysphagia [Unknown]
  - Gastrointestinal haemorrhage [Unknown]
  - Regurgitation [Unknown]

NARRATIVE: CASE EVENT DATE: 20201210
